APPROVED DRUG PRODUCT: THEOPHYLLINE
Active Ingredient: THEOPHYLLINE
Strength: 80MG/15ML
Dosage Form/Route: ELIXIR;ORAL
Application: A089223 | Product #001
Applicant: ALPHARMA US PHARMACEUTICALS DIVISION
Approved: May 27, 1988 | RLD: No | RS: No | Type: DISCN